FAERS Safety Report 4749556-X (Version None)
Quarter: 2005Q3

REPORT INFORMATION
  Report Type: 
  Country: None (occurrence: None)
  Receive Date: 20050822
  Receipt Date: 20030822
  Transmission Date: 20060218
  Serious: Yes (Death, Hospitalization)
  Sender: FDA-Public Use
  Company Number: US-GLAXOSMITHKLINE-A0423094A

PATIENT
  Age: 33 Year
  Sex: Female
  Weight: 101.4 kg

DRUGS (4)
  1. COMBIVIR [Suspect]
     Indication: HIV INFECTION
     Dosage: 450MG TWICE PER DAY
     Route: 048
     Dates: start: 20030618, end: 20030723
  2. VIRAMUNE [Suspect]
     Indication: HIV INFECTION
     Dosage: 200MG TWICE PER DAY
     Route: 048
     Dates: start: 20030618, end: 20030723
  3. IRON [Concomitant]
  4. PRENATAL VITAMINS [Concomitant]

REACTIONS (27)
  - ACIDOSIS [None]
  - ACUTE FATTY LIVER OF PREGNANCY [None]
  - ANAEMIA [None]
  - CAESAREAN SECTION [None]
  - COAGULATION TEST ABNORMAL [None]
  - DRUG EXPOSURE DURING PREGNANCY [None]
  - FATIGUE [None]
  - HAEMORRHAGE [None]
  - HELLP SYNDROME [None]
  - HEPATIC ENZYME INCREASED [None]
  - HEPATIC FAILURE [None]
  - HEPATIC NECROSIS [None]
  - HEPATIC STEATOSIS [None]
  - HEPATITIS [None]
  - MULTI-ORGAN FAILURE [None]
  - NAUSEA [None]
  - OCULAR ICTERUS [None]
  - PNEUMOTHORAX [None]
  - PREMATURE SEPARATION OF PLACENTA [None]
  - RENAL FAILURE ACUTE [None]
  - RENAL TUBULAR NECROSIS [None]
  - RESPIRATORY DISORDER [None]
  - RESPIRATORY FAILURE [None]
  - SEPSIS [None]
  - SOMNOLENCE [None]
  - TACHYPNOEA [None]
  - URINE OUTPUT DECREASED [None]
